FAERS Safety Report 6302788-1 (Version None)
Quarter: 2009Q3

REPORT INFORMATION
  Report Type: 
  Country: None (occurrence: None)
  Receive Date: 20090810
  Receipt Date: 20090728
  Transmission Date: 20100115
  Serious: Yes (Hospitalization, Other)
  Sender: FDA-Public Use
  Company Number: GR-JNJFOC-20080301377

PATIENT
  Age: 45 Year
  Sex: Male

DRUGS (6)
  1. INFLIXIMAB [Suspect]
     Dosage: THERAPY DURATION 60 MONTHS
     Route: 042
  2. INFLIXIMAB [Suspect]
     Indication: PSORIATIC ARTHROPATHY
     Route: 042
  3. METHOTREXATE [Suspect]
  4. METHOTREXATE [Suspect]
  5. METHOTREXATE [Suspect]
     Indication: DRUG USE FOR UNKNOWN INDICATION
  6. PREDNISOLONE [Concomitant]

REACTIONS (1)
  - VISCERAL LEISHMANIASIS [None]
